FAERS Safety Report 7939957-0 (Version None)
Quarter: 2011Q4

REPORT INFORMATION
  Report Type: 
  Country: None (occurrence: None)
  Receive Date: 20111125
  Receipt Date: 20111115
  Transmission Date: 20120403
  Serious: Yes (Death, Other)
  Sender: FDA-Public Use
  Company Number: PHHY2011US100299

PATIENT
  Age: 65 Year
  Sex: Male

DRUGS (6)
  1. ZOMETA [Suspect]
     Indication: METASTASES TO BONE
     Dosage: 4 MG EVERY 4 WEEKS
     Route: 042
     Dates: end: 20041201
  2. DOCETAXEL [Concomitant]
  3. ZOMETA [Suspect]
     Dosage: 4 MG EVERY 4 WEEKS
     Route: 042
     Dates: start: 20051101
  4. BEVACIZUMAB [Concomitant]
     Dosage: 5 MG/KG EVERY 2 WEEKS
  5. SORAFENIB [Concomitant]
     Dosage: 200 MG/DAY  5 DAYS A WEEK
     Route: 048
     Dates: start: 20080501, end: 20100601
  6. PACLITAXEL [Concomitant]
     Dosage: 80 MG/M2, 3 TIMES EVERY 4 WEEKS
     Dates: end: 20100629

REACTIONS (13)
  - NEOPLASM PROGRESSION [None]
  - NEOPLASM MALIGNANT [None]
  - METASTASES TO SPINE [None]
  - SWELLING [None]
  - TOOTH INFECTION [None]
  - JAW FRACTURE [None]
  - ARTERITIS [None]
  - PROSTATIC SPECIFIC ANTIGEN INCREASED [None]
  - LYMPHADENOPATHY MEDIASTINAL [None]
  - BONE EROSION [None]
  - PAIN IN JAW [None]
  - NECROSIS [None]
  - OSTEONECROSIS OF JAW [None]
